FAERS Safety Report 10937261 (Version 2)
Quarter: 2015Q2

REPORT INFORMATION
  Report Type: Spontaneous
  Country: US (occurrence: US)
  Receive Date: 20150321
  Receipt Date: 20150525
  Transmission Date: 20150821
  Serious: No
  Sender: FDA-Public Use
  Company Number: US-JNJFOC-20131200743

PATIENT
  Age: 25 Year
  Sex: Male

DRUGS (3)
  1. TRAZODONE [Concomitant]
     Active Substance: TRAZODONE HYDROCHLORIDE
     Indication: INSOMNIA
     Route: 048
     Dates: start: 2012
  2. TOPAMAX [Suspect]
     Active Substance: TOPIRAMATE
     Indication: BULIMIA NERVOSA
     Route: 048
     Dates: start: 2012, end: 2013
  3. TOPAMAX [Suspect]
     Active Substance: TOPIRAMATE
     Indication: BULIMIA NERVOSA
     Route: 048
     Dates: start: 201304

REACTIONS (3)
  - Product use issue [Unknown]
  - Paraesthesia [Recovered/Resolved]
  - Treatment noncompliance [Unknown]

NARRATIVE: CASE EVENT DATE: 2012
